FAERS Safety Report 6078453-5 (Version None)
Quarter: 2009Q1

REPORT INFORMATION
  Report Type: 
  Country: None (occurrence: None)
  Receive Date: 20090212
  Receipt Date: 20090212
  Transmission Date: 20090719
  Serious: Yes (Hospitalization)
  Sender: FDA-Public Use
  Company Number: None

PATIENT
  Sex: Male
  Weight: 69.5 kg

DRUGS (1)
  1. CISPLATIN [Suspect]
     Dosage: 193 MG
     Dates: end: 20090120

REACTIONS (7)
  - CANDIDIASIS [None]
  - FLUID INTAKE REDUCED [None]
  - HYPOPHAGIA [None]
  - MUCOSAL INFLAMMATION [None]
  - ORAL INFECTION [None]
  - STOMATITIS [None]
  - WEIGHT DECREASED [None]
